FAERS Safety Report 11311281 (Version 1)
Quarter: 2015Q3

REPORT INFORMATION
  Report Type: Spontaneous
  Country: JP (occurrence: JP)
  Receive Date: 20150727
  Receipt Date: 20150727
  Transmission Date: 20151125
  Serious: Yes (Life-Threatening, Hospitalization, Other)
  Sender: FDA-Public Use
  Company Number: JP-ROCHE-1612266

PATIENT
  Sex: Male

DRUGS (1)
  1. ACTEMRA [Suspect]
     Active Substance: TOCILIZUMAB
     Indication: JUVENILE IDIOPATHIC ARTHRITIS
     Dosage: DOSAGE UNCERTAIN
     Route: 041

REACTIONS (12)
  - Splenomegaly [Unknown]
  - Grip strength decreased [Unknown]
  - Drug ineffective [Unknown]
  - Influenza [Unknown]
  - Leukaemia [Unknown]
  - Idiopathic pulmonary fibrosis [Unknown]
  - Nasopharyngitis [Unknown]
  - Osteolysis [Unknown]
  - Stomatitis [Unknown]
  - Lymphadenopathy [Unknown]
  - Asthenia [Unknown]
  - White blood cell count decreased [Unknown]
